FAERS Safety Report 9026489 (Version 1)
Quarter: 2013Q1

REPORT INFORMATION
  Report Type: Spontaneous
  Country: IT (occurrence: IT)
  Receive Date: 20130123
  Receipt Date: 20130123
  Transmission Date: 20140127
  Serious: Yes (Other)
  Sender: FDA-Public Use
  Company Number: IT-JNJFOC-20130109967

PATIENT
  Sex: 0

DRUGS (1)
  1. HALOPERIDOL DECANOATE [Suspect]
     Indication: SEDATION
     Dosage: 5 MG OR 10 MG
     Route: 030

REACTIONS (2)
  - Adverse drug reaction [Unknown]
  - Dystonia [Unknown]
